FAERS Safety Report 12612787 (Version 5)
Quarter: 2016Q3

REPORT INFORMATION
  Report Type: Report from Study
  Country: US (occurrence: US)
  Receive Date: 20160801
  Receipt Date: 20160912
  Transmission Date: 20161109
  Serious: Yes (Death, Hospitalization, Other)
  Sender: FDA-Public Use
  Company Number: US-AMGEN-USASL2016099287

PATIENT
  Age: 70 Year
  Sex: Female
  Weight: 50.34 kg

DRUGS (3)
  1. INSULIN [Concomitant]
     Active Substance: INSULIN NOS
     Indication: DIABETES MELLITUS
     Dosage: UNK
  2. ENBREL [Suspect]
     Active Substance: ETANERCEPT
     Indication: PRODUCT USED FOR UNKNOWN INDICATION
     Dosage: UNK
     Route: 065
     Dates: start: 20151113
  3. REPATHA [Suspect]
     Active Substance: EVOLOCUMAB
     Indication: HYPERLIPIDAEMIA
     Dosage: UNK, Q2WK
     Route: 058
     Dates: start: 201510

REACTIONS (18)
  - Pallor [Unknown]
  - Malnutrition [Recovering/Resolving]
  - Dizziness [Unknown]
  - Atrial fibrillation [Recovering/Resolving]
  - Fibromyalgia [Unknown]
  - Dyspnoea exertional [Unknown]
  - Nocturia [Unknown]
  - Metastases to central nervous system [Unknown]
  - Cerebrovascular accident [Recovering/Resolving]
  - Asthenia [Unknown]
  - Neuropathy peripheral [Unknown]
  - Dyspepsia [Unknown]
  - Gastrointestinal mucosal disorder [Unknown]
  - Monoparesis [Recovering/Resolving]
  - Pollakiuria [Unknown]
  - Nausea [Unknown]
  - Metastatic malignant melanoma [Fatal]
  - Headache [Unknown]
